FAERS Safety Report 4762992-0 (Version None)
Quarter: 2005Q3

REPORT INFORMATION
  Report Type: 
  Country: None (occurrence: None)
  Receive Date: 20050826
  Receipt Date: 20041022
  Transmission Date: 20060218
  Serious: Yes (Death, Other)
  Sender: FDA-Public Use
  Company Number: USA-2004-0017358

PATIENT
  Age: 32 Year
  Sex: Male

DRUGS (2)
  1. OXYCONTIN [Suspect]
     Dosage: 80 MG, Q12H
     Dates: start: 20030601
  2. COCAINE (COCAINE) [Suspect]

REACTIONS (2)
  - OVERDOSE [None]
  - POLYSUBSTANCE ABUSE [None]
